FAERS Safety Report 7806835-7 (Version None)
Quarter: 2011Q4

REPORT INFORMATION
  Report Type: 
  Country: None (occurrence: None)
  Receive Date: 20111011
  Receipt Date: 20111005
  Transmission Date: 20120403
  Serious: Yes (Other)
  Sender: FDA-Public Use
  Company Number: AT-PFIZER INC-2011222644

PATIENT
  Age: 62 Year
  Sex: Female

DRUGS (7)
  1. CO-DILATREND [Concomitant]
     Dosage: 1/2 TABLETS, 2X/DAY
     Route: 048
  2. ZOMETA [Concomitant]
     Dosage: 4 MG, MONTHLY
     Route: 042
  3. SUTENT [Suspect]
     Indication: METASTATIC RENAL CELL CARCINOMA
     Dosage: 50 MG, 1X/DAY
     Route: 048
     Dates: start: 20091217
  4. MUTAN [Concomitant]
     Dosage: 20 MG, 1X/DAY
  5. PANTOPRAZOLE [Concomitant]
     Dosage: 40 MG, 1X/DAY
  6. LEVOTHYROXINE SODIUM [Concomitant]
     Dosage: 100 MG, 1X/DAY
  7. HYDROMORPHONE HCL [Concomitant]
     Dosage: 40 MG, 2X/DAY
     Route: 048

REACTIONS (1)
  - PALMAR-PLANTAR ERYTHRODYSAESTHESIA SYNDROME [None]
